FAERS Safety Report 14874087 (Version 1)
Quarter: 2018Q2

REPORT INFORMATION
  Report Type: Spontaneous
  Country: SE (occurrence: SE)
  Receive Date: 20180510
  Receipt Date: 20180510
  Transmission Date: 20180711
  Serious: Yes (Other)
  Sender: FDA-Public Use
  Company Number: SE-TEVA-2018-SE-890276

PATIENT
  Age: 65 Year
  Sex: Female

DRUGS (1)
  1. METRONIDAZOL ACTAVIS [Suspect]
     Active Substance: METRONIDAZOLE
     Route: 065
     Dates: end: 20180302

REACTIONS (6)
  - Polyneuropathy [Unknown]
  - Hypoaesthesia [Unknown]
  - Skin burning sensation [Unknown]
  - Sensory loss [Unknown]
  - Pain in extremity [Unknown]
  - Arthralgia [Unknown]

NARRATIVE: CASE EVENT DATE: 20180201
